FAERS Safety Report 5690588-5 (Version None)
Quarter: 2008Q1

REPORT INFORMATION
  Report Type: 
  Country: None (occurrence: None)
  Receive Date: 20080331
  Receipt Date: 20080331
  Transmission Date: 20080703
  Serious: Yes (Hospitalization, Other)
  Sender: FDA-Public Use
  Company Number: None

PATIENT
  Age: 1 Year
  Sex: Male
  Weight: 22.5438 kg

DRUGS (1)
  1. SINGULAIR [Suspect]
     Indication: ASTHMA
     Dosage: ONE PILL ONCE A DAY  PO
     Route: 048
     Dates: start: 20040110, end: 20060110

REACTIONS (2)
  - ILL-DEFINED DISORDER [None]
  - NERVOUSNESS [None]
